FAERS Safety Report 16483042 (Version 1)
Quarter: 2019Q2

REPORT INFORMATION
  Report Type: Spontaneous
  Country: US (occurrence: US)
  Receive Date: 20190515
  Receipt Date: 20190515
  Transmission Date: 20190711
  Serious: No
  Sender: FDA-Public Use
  Company Number: None

PATIENT

DRUGS (1)
  1. EMBEDA [Suspect]
     Active Substance: MORPHINE SULFATE\NALTREXONE HYDROCHLORIDE

REACTIONS (5)
  - Dyspepsia [None]
  - Gastrooesophageal reflux disease [None]
  - Peripheral swelling [None]
  - Hiccups [None]
  - Pruritus [None]

NARRATIVE: CASE EVENT DATE: 201902
